FAERS Safety Report 4902853-7 (Version None)
Quarter: 2006Q1

REPORT INFORMATION
  Report Type: 
  Country: None (occurrence: None)
  Receive Date: 20060207
  Receipt Date: 20001207
  Transmission Date: 20060701
  Serious: Yes (Other)
  Sender: FDA-Public Use
  Company Number: UG-2000-BP-02252

PATIENT
  Age: 29 Year
  Sex: Female

DRUGS (3)
  1. VIRAMUNE [Suspect]
     Indication: ACQUIRED IMMUNODEFICIENCY SYNDROME
     Route: 048
     Dates: start: 20000922, end: 20000922
  2. FERROUS SULFATE TAB [Concomitant]
     Indication: ANAEMIA
     Route: 048
     Dates: start: 20000810
  3. FOLIC ACID [Concomitant]
     Indication: ANAEMIA
     Route: 048
     Dates: start: 20000810

REACTIONS (2)
  - DRUG EXPOSURE DURING PREGNANCY [None]
  - NEUTROPENIA [None]
